FAERS Safety Report 7852817 (Version 6)
Quarter: 2017Q2

REPORT INFORMATION
  Report Type: Spontaneous
  Country: US (occurrence: US)
  Receive Date: 20110311
  Receipt Date: 20170413
  Transmission Date: 20170830
  Serious: Yes (Hospitalization, Other)
  Sender: FDA-Public Use
  Company Number: US-ASTRAZENECA-2009UW03041

PATIENT
  Age: 42 Year
  Sex: Female
  Weight: 65.3 kg

DRUGS (49)
  1. NEXIUM [Suspect]
     Active Substance: ESOMEPRAZOLE MAGNESIUM
     Indication: GASTROOESOPHAGEAL REFLUX DISEASE
     Route: 048
  2. TOPROL XL [Suspect]
     Active Substance: METOPROLOL SUCCINATE
     Indication: HEART RATE ABNORMAL
     Dosage: 25 - 50 DAILY
     Route: 048
  3. TOPROL XL [Suspect]
     Active Substance: METOPROLOL SUCCINATE
     Indication: BLOOD PRESSURE ABNORMAL
     Route: 048
     Dates: start: 2004
  4. OMEGA FATTY 3 [Concomitant]
     Indication: BLOOD CHOLESTEROL ABNORMAL
  5. BAYCOL [Concomitant]
     Active Substance: CERIVASTATIN SODIUM
  6. NORCO [Concomitant]
     Active Substance: ACETAMINOPHEN\HYDROCODONE BITARTRATE
     Indication: FIBROMYALGIA
     Dosage: PRN
     Route: 048
  7. COQ10 [Concomitant]
     Active Substance: UBIDECARENONE
     Indication: FATIGUE
  8. BIOTENE NOS [Concomitant]
     Active Substance: CETYLPYRIDINIUM CHLORIDE OR SODIUM FLUORIDE OR SODIUM MONOFLUOROPHOSPHATE OR GLUCOSE OXIDASE\LACTOFERRIN\LACTOPEROXIDASE BOVINE\LYSOZYME
     Indication: HAIR DISORDER
     Dosage: 1000.0UG UNKNOWN
  9. VITAMIN D3 [Concomitant]
     Active Substance: CHOLECALCIFEROL
     Indication: IMMUNE SYSTEM DISORDER
  10. CRESTOR [Suspect]
     Active Substance: ROSUVASTATIN CALCIUM
     Indication: BLOOD CHOLESTEROL ABNORMAL
     Dosage: 20 MG ON TUESDAYS AND THURSDAYS
     Route: 048
     Dates: start: 200910
  11. CRESTOR [Suspect]
     Active Substance: ROSUVASTATIN CALCIUM
     Indication: BLOOD CHOLESTEROL ABNORMAL
     Route: 048
  12. KEFLEX [Suspect]
     Active Substance: CEPHALEXIN
     Route: 065
  13. HCTZ [Concomitant]
     Active Substance: HYDROCHLOROTHIAZIDE
     Dosage: 25-50 DAILY
  14. LOVAZA [Concomitant]
     Active Substance: OMEGA-3-ACID ETHYL ESTERS
     Indication: BLOOD CHOLESTEROL ABNORMAL
     Route: 048
     Dates: start: 2013
  15. DOXAZOSIN MESILATE [Concomitant]
     Active Substance: DOXAZOSIN MESYLATE
     Indication: BLOOD PRESSURE ABNORMAL
     Route: 048
     Dates: start: 20121126
  16. CLONIDINE. [Concomitant]
     Active Substance: CLONIDINE
     Indication: BLOOD PRESSURE ABNORMAL
     Route: 048
     Dates: start: 20121024
  17. COQ10 [Concomitant]
     Active Substance: UBIDECARENONE
     Indication: ASTHENIA
  18. VALIUM [Concomitant]
     Active Substance: DIAZEPAM
     Indication: SEIZURE
     Dosage: GENERIC; 5 MG AS REQUIRED
  19. VALIUM [Concomitant]
     Active Substance: DIAZEPAM
     Indication: SLEEP DISORDER
     Dosage: GENERIC; 5 MG AS REQUIRED
  20. VALIUM [Concomitant]
     Active Substance: DIAZEPAM
     Indication: STRESS
     Dosage: GENERIC; 5 MG AS REQUIRED
  21. NEXIUM [Suspect]
     Active Substance: ESOMEPRAZOLE MAGNESIUM
     Indication: GASTROOESOPHAGEAL REFLUX DISEASE
     Route: 048
  22. HYDROCHLOROTHIAZIDE. [Suspect]
     Active Substance: HYDROCHLOROTHIAZIDE
     Dosage: NON-AZ PRODUCT
     Route: 065
  23. ASPIRIN. [Concomitant]
     Active Substance: ASPIRIN
  24. SPIRONOLACTONE. [Concomitant]
     Active Substance: SPIRONOLACTONE
     Indication: BLOOD PRESSURE ABNORMAL
     Route: 048
     Dates: start: 2013
  25. EDECRIN [Concomitant]
     Active Substance: ETHACRYNIC ACID
     Indication: FLUID IMBALANCE
     Route: 048
     Dates: start: 2013
  26. VALIUM [Concomitant]
     Active Substance: DIAZEPAM
     Indication: DEPRESSION
     Dosage: GENERIC; 5 MG AS REQUIRED
  27. CHROMIUM PICOLINATE [Concomitant]
     Active Substance: CHROMIUM PICOLINATE
     Indication: BLOOD GLUCOSE ABNORMAL
     Dosage: 200.0UG UNKNOWN
  28. TOPROL XL [Suspect]
     Active Substance: METOPROLOL SUCCINATE
     Indication: BLOOD PRESSURE ABNORMAL
     Dosage: 25 - 50 DAILY
     Route: 048
  29. VITAMIN D [Concomitant]
     Active Substance: CHOLECALCIFEROL
  30. EDECRIN [Concomitant]
     Active Substance: ETHACRYNIC ACID
     Indication: BLOOD PRESSURE ABNORMAL
     Route: 048
     Dates: start: 2013
  31. HYDRALAZINE [Concomitant]
     Active Substance: HYDRALAZINE HYDROCHLORIDE
     Indication: BLOOD PRESSURE ABNORMAL
     Route: 048
     Dates: start: 20120714
  32. LYRICA [Concomitant]
     Active Substance: PREGABALIN
     Indication: FIBROMYALGIA
     Route: 048
  33. NEXIUM [Suspect]
     Active Substance: ESOMEPRAZOLE MAGNESIUM
     Indication: GASTROOESOPHAGEAL REFLUX DISEASE
     Route: 048
     Dates: start: 2004, end: 2009
  34. CRESTOR [Suspect]
     Active Substance: ROSUVASTATIN CALCIUM
     Indication: BLOOD CHOLESTEROL ABNORMAL
     Route: 048
     Dates: start: 20061219
  35. FIORICET [Concomitant]
     Active Substance: ACETAMINOPHEN\BUTALBITAL\CAFFEINE
     Indication: MIGRAINE
     Dosage: AS REQUIRED
     Route: 048
  36. ENDOCET [Concomitant]
     Active Substance: ACETAMINOPHEN\OXYCODONE HYDROCHLORIDE
     Indication: FIBROMYALGIA
     Dosage: AS REQUIRED
     Route: 048
  37. CLONIDINE. [Concomitant]
     Active Substance: CLONIDINE
     Indication: BLOOD PRESSURE ABNORMAL
     Route: 048
     Dates: start: 20121024
  38. MORPHINE [Suspect]
     Active Substance: MORPHINE
     Route: 065
  39. LIPITOR [Concomitant]
     Active Substance: ATORVASTATIN CALCIUM
  40. PLAVIX [Concomitant]
     Active Substance: CLOPIDOGREL BISULFATE
     Indication: ARTERIAL DISORDER
     Route: 048
     Dates: start: 2004
  41. VITAMIN D3 [Concomitant]
     Active Substance: CHOLECALCIFEROL
     Indication: BONE DISORDER
  42. PLAVIX [Concomitant]
     Active Substance: CLOPIDOGREL BISULFATE
     Indication: RENAL DISORDER
     Route: 048
     Dates: start: 2004
  43. ZETIA [Concomitant]
     Active Substance: EZETIMIBE
     Indication: BLOOD CHOLESTEROL ABNORMAL
     Route: 048
     Dates: start: 2013
  44. TOPROL XL [Suspect]
     Active Substance: METOPROLOL SUCCINATE
     Indication: HEART RATE ABNORMAL
     Route: 048
     Dates: start: 2004
  45. CRESTOR [Suspect]
     Active Substance: ROSUVASTATIN CALCIUM
     Indication: BLOOD CHOLESTEROL ABNORMAL
     Route: 048
     Dates: start: 2003
  46. CRESTOR [Suspect]
     Active Substance: ROSUVASTATIN CALCIUM
     Indication: BLOOD CHOLESTEROL ABNORMAL
     Route: 048
     Dates: start: 200910
  47. SYMBICORT [Suspect]
     Active Substance: BUDESONIDE\FORMOTEROL FUMARATE DIHYDRATE
     Indication: ASTHMA
     Dosage: 160/4.5,TWO TIMES A DAY
     Route: 055
     Dates: start: 20140801
  48. PENICILLIN NOS [Suspect]
     Active Substance: PENICILLIN
     Route: 065
  49. DEXILANT [Concomitant]
     Active Substance: DEXLANSOPRAZOLE
     Indication: GASTROOESOPHAGEAL REFLUX DISEASE
     Route: 048
     Dates: start: 2009

REACTIONS (60)
  - Pain [Unknown]
  - Viral infection [Unknown]
  - Eating disorder [Unknown]
  - Idiopathic pulmonary fibrosis [Unknown]
  - Amnesia [Unknown]
  - Haemorrhagic disorder [Unknown]
  - Renal impairment [Unknown]
  - Incisional hernia [Not Recovered/Not Resolved]
  - Joint injury [Unknown]
  - Cerebrovascular arteriovenous malformation [Unknown]
  - Alveolar osteitis [Unknown]
  - Affective disorder [Unknown]
  - Drug ineffective [Unknown]
  - Renal artery stenosis [Unknown]
  - Anaphylactic shock [Unknown]
  - Secretion discharge [Unknown]
  - Type 2 diabetes mellitus [Unknown]
  - Colitis [Unknown]
  - Sinus bradycardia [Unknown]
  - Vitamin D increased [Unknown]
  - Pneumonia [Unknown]
  - Eye disorder [Unknown]
  - Liver disorder [Unknown]
  - Aneurysm [Unknown]
  - Corneal lesion [Unknown]
  - Weight decreased [Unknown]
  - Hypertension [Unknown]
  - Fall [Unknown]
  - Malaise [Unknown]
  - Tenosynovitis stenosans [Unknown]
  - Vomiting [Unknown]
  - Hypotension [Unknown]
  - Sleep disorder [Unknown]
  - Mental disorder [Unknown]
  - Adverse event [Unknown]
  - Intentional product misuse [Unknown]
  - Blood pressure inadequately controlled [Unknown]
  - Blood potassium decreased [Unknown]
  - Cough [Unknown]
  - Gastrointestinal inflammation [Unknown]
  - Blood cholesterol increased [Unknown]
  - Depression [Unknown]
  - Swelling [Unknown]
  - Vitamin B12 increased [Unknown]
  - Stress [Unknown]
  - Osteoarthritis [Unknown]
  - Osteitis deformans [Unknown]
  - Bronchitis [Unknown]
  - Migraine [Unknown]
  - Asthma [Unknown]
  - Muscle spasms [Unknown]
  - Empty sella syndrome [Unknown]
  - Diarrhoea [Unknown]
  - Cardiomegaly [Unknown]
  - Blood calcium increased [Unknown]
  - Headache [Unknown]
  - Blood glucose decreased [Recovered/Resolved]
  - Myositis [Unknown]
  - Arteriosclerosis [Unknown]
  - Off label use [Recovered/Resolved]

NARRATIVE: CASE EVENT DATE: 1988
